FAERS Safety Report 22529140 (Version 1)
Quarter: 2023Q2

REPORT INFORMATION
  Report Type: Spontaneous
  Country: KR (occurrence: KR)
  Receive Date: 20230607
  Receipt Date: 20230607
  Transmission Date: 20230721
  Serious: Yes (Hospitalization)
  Sender: FDA-Public Use
  Company Number: KR-ORGANON-O2305KOR003293

PATIENT
  Age: 63 Year
  Sex: Male
  Weight: 76.4 kg

DRUGS (7)
  1. COZAAR [Suspect]
     Active Substance: LOSARTAN POTASSIUM
     Dosage: UNK
  2. RIBAVIRIN [Suspect]
     Active Substance: RIBAVIRIN
     Indication: Chronic hepatitis C
     Dosage: 1000 MILLIGRAM, EVERY 12 HOURS
  3. LEVOCETIRIZINE HYDROCHLORIDE [Concomitant]
     Active Substance: LEVOCETIRIZINE HYDROCHLORIDE
     Dosage: UNK
  4. GUAIFENESIN [Concomitant]
     Active Substance: GUAIFENESIN
     Dosage: UNK
  5. PANTOPRAZOLE SODIUM [Concomitant]
     Active Substance: PANTOPRAZOLE SODIUM
     Dosage: UNK, ONE PER DAY
  6. CEFPODOXIME PROXETIL [Concomitant]
     Active Substance: CEFPODOXIME PROXETIL
     Dosage: UNK
  7. RANITIDINE HYDROCHLORIDE [Concomitant]
     Active Substance: RANITIDINE HYDROCHLORIDE
     Dosage: UNK

REACTIONS (6)
  - Pyelonephritis acute [Recovered/Resolved]
  - Dysuria [Recovered/Resolved]
  - Pyrexia [Recovered/Resolved]
  - Dyspepsia [Recovered/Resolved]
  - Nasopharyngitis [Recovered/Resolved]
  - Urinary tract infection [Recovered/Resolved]

NARRATIVE: CASE EVENT DATE: 20170731
